FAERS Safety Report 25909042 (Version 1)
Quarter: 2025Q4

REPORT INFORMATION
  Report Type: Spontaneous
  Country: US (occurrence: US)
  Receive Date: 20251011
  Receipt Date: 20251011
  Transmission Date: 20260117
  Serious: Yes (Other)
  Sender: AMNEAL
  Company Number: US-AMNEAL-2025-AMRX-03699

PATIENT
  Sex: Female

DRUGS (2)
  1. BACLOFEN [Suspect]
     Active Substance: BACLOFEN
     Indication: Product used for unknown indication
     Dosage: UNK
     Route: 037
  2. VANCOMYCIN [Concomitant]
     Active Substance: VANCOMYCIN
     Indication: Antibiotic therapy
     Dosage: UNK
     Route: 042

REACTIONS (3)
  - Dystonia [Recovered/Resolved]
  - Cerebrospinal fluid leakage [Recovered/Resolved]
  - Device related infection [Recovered/Resolved]

NARRATIVE: CASE EVENT DATE: 20250101
